FAERS Safety Report 7511910-0 (Version None)
Quarter: 2011Q2

REPORT INFORMATION
  Report Type: 
  Country: None (occurrence: None)
  Receive Date: 20110531
  Receipt Date: 20110526
  Transmission Date: 20111010
  Serious: Yes (Hospitalization)
  Sender: FDA-Public Use
  Company Number: HK-PFIZER INC-2011114700

PATIENT
  Age: 50 Year
  Sex: Male

DRUGS (1)
  1. CARDURA [Suspect]
     Dosage: 4 MG, UNK

REACTIONS (1)
  - CARDIAC FAILURE [None]
